FAERS Safety Report 17711500 (Version 1)
Quarter: 2020Q2

REPORT INFORMATION
  Report Type: Spontaneous
  Country: CN (occurrence: CN)
  Receive Date: 20200427
  Receipt Date: 20200427
  Transmission Date: 20200714
  Serious: Yes (Other)
  Sender: FDA-Public Use
  Company Number: CN-PFIZER INC-2020160427

PATIENT
  Age: 34 Year
  Sex: Male
  Weight: 60 kg

DRUGS (3)
  1. PREDNISONE ACETATE [Suspect]
     Active Substance: PREDNISONE ACETATE
     Indication: GOUTY ARTHRITIS
     Dosage: 15 MG, 1X/DAY
     Route: 048
     Dates: start: 20200319, end: 20200323
  2. SODIUM CHLORIDE. [Concomitant]
     Active Substance: SODIUM CHLORIDE
     Indication: GOUTY ARTHRITIS
     Dosage: 20 ML, 1X/DAY
     Route: 042
     Dates: start: 20200319, end: 20200322
  3. METHYLPREDNISOLONE SODIUM SUCCINATE. [Suspect]
     Active Substance: METHYLPREDNISOLONE SODIUM SUCCINATE
     Indication: GOUTY ARTHRITIS
     Dosage: 40 MG, 1X/DAY
     Route: 042
     Dates: start: 20200319, end: 20200322

REACTIONS (2)
  - Rash pruritic [Recovered/Resolved]
  - Rash [Recovered/Resolved]

NARRATIVE: CASE EVENT DATE: 20200321
